FAERS Safety Report 4683575-7 (Version None)
Quarter: 2005Q2

REPORT INFORMATION
  Report Type: 
  Country: None (occurrence: None)
  Receive Date: 20050607
  Receipt Date: 20050506
  Transmission Date: 20051028
  Serious: Yes (Death, Hospitalization)
  Sender: FDA-Public Use
  Company Number: SG-SANOFI-SYNTHELABO-A01200503026

PATIENT
  Age: 85 Year
  Sex: Male
  Weight: 50 kg

DRUGS (8)
  1. XATRAL XL [Suspect]
     Indication: URINARY RETENTION
     Route: 048
     Dates: start: 20050408, end: 20050417
  2. XATRAL XL [Suspect]
     Indication: BENIGN PROSTATIC HYPERPLASIA
     Route: 048
     Dates: start: 20050408, end: 20050417
  3. DILATREND [Concomitant]
     Indication: CARDIAC FAILURE CONGESTIVE
     Dosage: 6 MG
     Route: 048
     Dates: start: 20050326
  4. ISOSORBIDE DINITRATE [Concomitant]
     Indication: CARDIAC FAILURE CONGESTIVE
     Dosage: 15 MG
     Route: 048
     Dates: start: 20050326
  5. ZIMOR [Concomitant]
     Indication: DRUG USE FOR UNKNOWN INDICATION
     Dosage: 40 MG
     Route: 048
     Dates: start: 20050326
  6. NEURO B [Concomitant]
     Indication: DRUG USE FOR UNKNOWN INDICATION
     Dosage: 1 UNIT
     Route: 048
     Dates: start: 20050326
  7. SANGOBION [Concomitant]
     Indication: DRUG USE FOR UNKNOWN INDICATION
     Dosage: 2 GTT
     Route: 048
     Dates: start: 20050326
  8. COTRIMOXAZOLE [Concomitant]
     Indication: URINARY TRACT INFECTION
     Route: 048
     Dates: start: 20050326, end: 20050331

REACTIONS (5)
  - MOUTH ULCERATION [None]
  - PENILE ULCERATION [None]
  - PYREXIA [None]
  - RASH PAPULAR [None]
  - TOXIC EPIDERMAL NECROLYSIS [None]
